FAERS Safety Report 12806141 (Version 2)
Quarter: 2016Q4

REPORT INFORMATION
  Report Type: Spontaneous
  Country: GB (occurrence: GB)
  Receive Date: 20161004
  Receipt Date: 20161014
  Transmission Date: 20170207
  Serious: Yes (Other)
  Sender: FDA-Public Use
  Company Number: GB-GLAXOSMITHKLINE-GB2016GSK144741

PATIENT
  Sex: Female

DRUGS (1)
  1. FLIXONASE NASAL SPRAY [Suspect]
     Active Substance: FLUTICASONE PROPIONATE
     Indication: SECRETION DISCHARGE
     Dosage: UNK
     Dates: start: 2005, end: 2014

REACTIONS (2)
  - Adrenal disorder [Unknown]
  - Addison^s disease [Unknown]

NARRATIVE: CASE EVENT DATE: 2014
